FAERS Safety Report 9394959 (Version 1)
Quarter: 2013Q3

REPORT INFORMATION
  Report Type: Spontaneous
  Country: US (occurrence: US)
  Receive Date: 20130711
  Receipt Date: 20130711
  Transmission Date: 20140515
  Serious: Yes (Death)
  Sender: FDA-Public Use
  Company Number: US-COVIDIEN/TYCO HEALTHCARE/MALLINCKRODT-T201301174

PATIENT
  Age: 37 Year
  Sex: Male

DRUGS (2)
  1. ROXICODONE [Suspect]
     Indication: PRODUCT USED FOR UNKNOWN INDICATION
     Dosage: BETWEEN 600-800 MG
  2. HEROIN [Suspect]
     Dosage: APPROXIMATELY 800 MG

REACTIONS (2)
  - Overdose [Fatal]
  - Cardio-respiratory arrest [Fatal]
